FAERS Safety Report 12237241 (Version 1)
Quarter: 2016Q2

REPORT INFORMATION
  Report Type: Spontaneous
  Country: US (occurrence: None)
  Receive Date: 20160404
  Receipt Date: 20160404
  Transmission Date: 20160815
  Serious: Yes (Disabling, Other)
  Sender: FDA-Public Use
  Company Number: None

PATIENT
  Age: 61 Year
  Sex: Female

DRUGS (8)
  1. RITEAID RX 05482 1013577, ZOLPIDEM TARTRATE 10MG TABLET, GENERIC FOR AMBIEN, FILLED 3/27/15, 310 376 4460 [Suspect]
     Active Substance: ZOLPIDEM TARTRATE
     Indication: DRUG THERAPY
     Route: 048
     Dates: start: 20150416, end: 20150425
  2. D [Concomitant]
  3. RITEAID RX 05482 1013577, ZOLPIDEM TARTRATE 10MG TABLET, GENERIC FOR AMBIEN, FILLED 3/27/15, 310 376 4460 [Suspect]
     Active Substance: ZOLPIDEM TARTRATE
     Indication: INSOMNIA
     Route: 048
     Dates: start: 20150416, end: 20150425
  4. VITAMIN B12 [Concomitant]
     Active Substance: CYANOCOBALAMIN
  5. ACYCLOVIR. [Concomitant]
     Active Substance: ACYCLOVIR
  6. GABAPENTIN. [Concomitant]
     Active Substance: GABAPENTIN
  7. VITAMIN C [Concomitant]
     Active Substance: ASCORBIC ACID
  8. GENSING [Concomitant]

REACTIONS (6)
  - Impaired work ability [None]
  - Neuralgia [None]
  - Nerve injury [None]
  - Hypersensitivity [None]
  - Paraesthesia [None]
  - Local swelling [None]

NARRATIVE: CASE EVENT DATE: 20150416
